FAERS Safety Report 5890825-8 (Version None)
Quarter: 2008Q3

REPORT INFORMATION
  Report Type: 
  Country: None (occurrence: None)
  Receive Date: 20080922
  Receipt Date: 20080912
  Transmission Date: 20090109
  Serious: Yes (Hospitalization)
  Sender: FDA-Public Use
  Company Number: PHHO2008FR11169

PATIENT
  Sex: Female
  Weight: 67 kg

DRUGS (2)
  1. CGS 20267 T30748+ [Suspect]
     Indication: BREAST CANCER
     Dosage: 4 MG
     Route: 048
     Dates: start: 20040122
  2. ZOMETA [Suspect]
     Dosage: UNK
     Dates: start: 20040122

REACTIONS (3)
  - ABSCESS MANAGEMENT [None]
  - OSTEONECROSIS [None]
  - TOOTH ABSCESS [None]
